FAERS Safety Report 8065152-3 (Version None)
Quarter: 2012Q1

REPORT INFORMATION
  Report Type: 
  Country: None (occurrence: None)
  Receive Date: 20120117
  Receipt Date: 20120113
  Transmission Date: 20120608
  Serious: Yes (Other)
  Sender: FDA-Public Use
  Company Number: DAV-AE-ALP-12-002

PATIENT
  Age: 28 Year
  Sex: Female
  Weight: 77.1115 kg

DRUGS (2)
  1. ALPRAZOLAM [Suspect]
     Indication: ANXIETY
     Dosage: 2 MG. /3X/DAY
     Dates: start: 20100101, end: 20120101
  2. POWDERED FORM OF VITAMIN C 5,000 MG. [Concomitant]

REACTIONS (3)
  - DYSKINESIA [None]
  - CHILLS [None]
  - MUSCLE TIGHTNESS [None]
